FAERS Safety Report 6244827-2 (Version None)
Quarter: 2009Q2

REPORT INFORMATION
  Report Type: 
  Country: None (occurrence: None)
  Receive Date: 20090623
  Receipt Date: 20090623
  Transmission Date: 20091009
  Serious: No
  Sender: FDA-Public Use
  Company Number: None

PATIENT
  Age: 65 Year
  Sex: Female
  Weight: 52.1637 kg

DRUGS (4)
  1. NASONEX [Suspect]
     Indication: DYSPNOEA
     Dosage: TWO SPRAYS IN EACH NOSTRIL 3 TIMES IN ONE DAY NASAL
     Route: 045
     Dates: start: 20090406, end: 20090407
  2. NASONEX [Suspect]
     Indication: INFLUENZA
     Dosage: TWO SPRAYS IN EACH NOSTRIL 3 TIMES IN ONE DAY NASAL
     Route: 045
     Dates: start: 20090406, end: 20090407
  3. ASTEPRO [Suspect]
     Indication: DYSPNOEA
     Dosage: ONE SPRAY PER NOSTRIL 3 TIMES IN ONE DAY NASAL
     Route: 045
     Dates: start: 20090410, end: 20090411
  4. ASTEPRO [Suspect]
     Indication: INFLUENZA
     Dosage: ONE SPRAY PER NOSTRIL 3 TIMES IN ONE DAY NASAL
     Route: 045
     Dates: start: 20090410, end: 20090411

REACTIONS (2)
  - AGEUSIA [None]
  - ANOSMIA [None]
